FAERS Safety Report 4427654-8 (Version None)
Quarter: 2004Q3

REPORT INFORMATION
  Report Type: 
  Country: None (occurrence: None)
  Receive Date: 20040817
  Receipt Date: 20040806
  Transmission Date: 20050211
  Serious: Yes (Hospitalization)
  Sender: FDA-Public Use
  Company Number: US-JNJFOC-20040801908

PATIENT
  Sex: Male
  Weight: 100.25 kg

DRUGS (7)
  1. VIADUR [Suspect]
     Route: 058
  2. DIGOXIN [Concomitant]
  3. LASIX [Concomitant]
  4. ZOCOR [Concomitant]
  5. GLYBURIDE [Concomitant]
  6. LISINOPRIL [Concomitant]
  7. METAPROLOL [Concomitant]

REACTIONS (4)
  - IMPAIRED HEALING [None]
  - IMPLANT SITE IRRITATION [None]
  - RIFT VALLEY FEVER [None]
  - WOUND DRAINAGE [None]
